FAERS Safety Report 17699086 (Version 1)
Quarter: 2020Q2

REPORT INFORMATION
  Report Type: Spontaneous
  Country: US (occurrence: US)
  Receive Date: 20200423
  Receipt Date: 20200423
  Transmission Date: 20200714
  Serious: Yes (Hospitalization)
  Sender: FDA-Public Use
  Company Number: None

PATIENT
  Sex: Male
  Weight: 68 kg

DRUGS (2)
  1. TAXOL [Suspect]
     Active Substance: PACLITAXEL
  2. GEMCITABINE HYDROCHLORIDE. [Suspect]
     Active Substance: GEMCITABINE HYDROCHLORIDE

REACTIONS (6)
  - Upper respiratory tract infection [None]
  - Neutrophil count decreased [None]
  - Therapy interrupted [None]
  - White blood cell count decreased [None]
  - Bacterial infection [None]
  - Pyrexia [None]

NARRATIVE: CASE EVENT DATE: 20200323
